FAERS Safety Report 8124106-9 (Version None)
Quarter: 2012Q1

REPORT INFORMATION
  Report Type: 
  Country: None (occurrence: None)
  Receive Date: 20120209
  Receipt Date: 20120203
  Transmission Date: 20120608
  Serious: Yes (Other)
  Sender: FDA-Public Use
  Company Number: US-JNJFOC-20110805015

PATIENT
  Sex: Male

DRUGS (1)
  1. LEVAQUIN [Suspect]
     Indication: URINARY TRACT INFECTION
     Route: 048
     Dates: start: 20090401, end: 20090701

REACTIONS (4)
  - TENDON RUPTURE [None]
  - ROTATOR CUFF SYNDROME [None]
  - BURSITIS [None]
  - TENOSYNOVITIS [None]
